FAERS Safety Report 5377730-0 (Version None)
Quarter: 2007Q3

REPORT INFORMATION
  Report Type: 
  Country: None (occurrence: None)
  Receive Date: 20070703
  Receipt Date: 20070621
  Transmission Date: 20080115
  Serious: Yes (Hospitalization)
  Sender: FDA-Public Use
  Company Number: FR-PFIZER INC-2007051469

PATIENT
  Age: 82 Year
  Sex: Male

DRUGS (9)
  1. INSPRA [Suspect]
     Route: 048
     Dates: start: 20070518, end: 20070526
  2. LASIX [Suspect]
     Route: 048
     Dates: start: 20070519, end: 20070525
  3. CARDENSIEL [Concomitant]
  4. PERINDOPRIL ERBUMINE [Concomitant]
  5. ASPIRIN [Concomitant]
  6. IKOREL [Concomitant]
  7. VASTAREL [Concomitant]
  8. AMLODIPINE [Concomitant]
  9. PRAVASTATIN [Concomitant]

REACTIONS (2)
  - APLASTIC ANAEMIA [None]
  - NEUTROPENIA [None]
